FAERS Safety Report 6581535-2 (Version None)
Quarter: 2010Q1

REPORT INFORMATION
  Report Type: 
  Country: None (occurrence: None)
  Receive Date: 20100215
  Receipt Date: 20100205
  Transmission Date: 20100710
  Serious: Yes (Life-Threatening, Hospitalization)
  Sender: FDA-Public Use
  Company Number: JP-MERCK-0912USA00556

PATIENT
  Age: 90 Year
  Sex: Male

DRUGS (17)
  1. STROMECTOL [Suspect]
     Indication: ACARODERMATITIS
     Route: 048
     Dates: start: 20091126, end: 20091126
  2. STROMECTOL [Suspect]
     Route: 048
     Dates: start: 20091119, end: 20091119
  3. GLUCOBAY [Concomitant]
     Indication: DIABETES MELLITUS
     Route: 048
     Dates: end: 20091130
  4. ZYLORIC [Concomitant]
     Indication: HYPERURICAEMIA
     Route: 048
     Dates: start: 20080912, end: 20091130
  5. RHYTHMY [Concomitant]
     Indication: INSOMNIA
     Route: 048
     Dates: start: 20090928, end: 20091130
  6. NIPOLAZIN [Concomitant]
     Indication: PRURITUS
     Route: 048
     Dates: start: 20091119, end: 20091126
  7. ATARAX [Concomitant]
     Indication: PRURITUS
     Route: 048
     Dates: start: 20091007, end: 20091126
  8. EURAX [Concomitant]
     Indication: PRURITUS
     Route: 061
     Dates: start: 20091119
  9. ARGAMATE JELLY [Concomitant]
     Indication: HYPERKALAEMIA
     Route: 048
     Dates: start: 20081105, end: 20091130
  10. DEPAS [Concomitant]
     Indication: INSOMNIA
     Route: 048
     Dates: start: 20090513, end: 20091130
  11. ADALAT CC [Concomitant]
     Indication: HYPERTENSION
     Route: 048
  12. PLAVIX [Concomitant]
     Indication: CAROTID ARTERY STENOSIS
     Route: 048
     Dates: start: 20090109
  13. LOCHOL (FLUVASTATIN SODIUM) [Concomitant]
     Indication: HYPERLIPIDAEMIA
     Route: 048
     Dates: end: 20091130
  14. ADETPHOS [Concomitant]
     Indication: DIZZINESS
     Route: 048
     Dates: end: 20091130
  15. CEROCRAL [Concomitant]
     Indication: DIZZINESS
     Route: 048
     Dates: end: 20091130
  16. GASMOTIN [Concomitant]
     Indication: GASTROINTESTINAL DISORDER
     Route: 048
  17. PEPCID [Concomitant]
     Indication: GASTROINTESTINAL DISORDER
     Route: 048

REACTIONS (2)
  - HYPERCALCAEMIA [None]
  - PNEUMONIA ASPIRATION [None]
